FAERS Safety Report 5145825-2 (Version None)
Quarter: 2006Q4

REPORT INFORMATION
  Report Type: 
  Country: None (occurrence: None)
  Receive Date: 20061108
  Receipt Date: 20061030
  Transmission Date: 20070319
  Serious: Yes (Hospitalization)
  Sender: FDA-Public Use
  Company Number: US-JNJFOC-20061006942

PATIENT
  Age: 47 Year
  Sex: Female

DRUGS (2)
  1. LEUSTATIN [Suspect]
     Indication: HAIRY CELL LEUKAEMIA
     Dosage: X 7 DAYS
     Route: 042
  2. VITAMIN CAP [Concomitant]

REACTIONS (2)
  - HAEMOLYTIC ANAEMIA [None]
  - HEPATOTOXICITY [None]
